FAERS Safety Report 7586831-8 (Version None)
Quarter: 2011Q3

REPORT INFORMATION
  Report Type: 
  Country: None (occurrence: None)
  Receive Date: 20110701
  Receipt Date: 20110627
  Transmission Date: 20111222
  Serious: Yes (Hospitalization)
  Sender: FDA-Public Use
  Company Number: IT-ABBOTT-11P-083-0834580-00

PATIENT
  Sex: Male

DRUGS (1)
  1. FENOFIBRATE [Suspect]
     Indication: PRODUCT USED FOR UNKNOWN INDICATION
     Route: 048
     Dates: start: 20070224, end: 20110224

REACTIONS (4)
  - PANCREATITIS ACUTE [None]
  - ABDOMINAL PAIN [None]
  - PANCREATIC NECROSIS [None]
  - PYREXIA [None]
